FAERS Safety Report 15354279 (Version 2)
Quarter: 2018Q3

REPORT INFORMATION
  Report Type: Report from Study
  Country: IL (occurrence: IL)
  Receive Date: 20180906
  Receipt Date: 20180919
  Transmission Date: 20181010
  Serious: Yes (Hospitalization, Other)
  Sender: FDA-Public Use
  Company Number: PHHY2018IL010481

PATIENT
  Age: 60 Year
  Sex: Female

DRUGS (1)
  1. AFINITOR [Suspect]
     Active Substance: EVEROLIMUS
     Indication: BREAST CANCER
     Dosage: 10 MG, QD
     Route: 048
     Dates: start: 20180102, end: 20180818

REACTIONS (12)
  - Upper limb fracture [Unknown]
  - Pain in extremity [Not Recovered/Not Resolved]
  - Oral discomfort [Recovering/Resolving]
  - Fatigue [Not Recovered/Not Resolved]
  - Breast cancer [Not Recovered/Not Resolved]
  - Oral pain [Recovering/Resolving]
  - Glossodynia [Recovering/Resolving]
  - Malignant neoplasm progression [Not Recovered/Not Resolved]
  - Fall [Recovered/Resolved]
  - Conjunctival neoplasm [Unknown]
  - Second primary malignancy [Unknown]
  - Gingival disorder [Recovered/Resolved]

NARRATIVE: CASE EVENT DATE: 20180511
